FAERS Safety Report 17901807 (Version 1)
Quarter: 2020Q2

REPORT INFORMATION
  Report Type: Other
  Country: US (occurrence: US)
  Receive Date: 20200616
  Receipt Date: 20200616
  Transmission Date: 20200714
  Serious: Yes (Other)
  Sender: FDA-Public Use
  Company Number: US-COMPLETE PHARMACY AND MEDICAL SOLUTIONS-2085968

PATIENT

DRUGS (1)
  1. GLUTATHIONE #2689  INJECTABLE [Suspect]
     Active Substance: GLUTATHIONE
     Route: 040

REACTIONS (1)
  - Dyspnoea [Recovered/Resolved]
